FAERS Safety Report 21924655 (Version 1)
Quarter: 2023Q1

REPORT INFORMATION
  Report Type: Spontaneous
  Country: BR (occurrence: BR)
  Receive Date: 20230130
  Receipt Date: 20230130
  Transmission Date: 20230418
  Serious: Yes (Other)
  Sender: FDA-Public Use
  Company Number: BR-STRIDES ARCOLAB LIMITED-2023SP001257

PATIENT
  Age: 32 Year
  Sex: Male

DRUGS (5)
  1. PREDNISOLONE [Suspect]
     Active Substance: PREDNISOLONE
     Indication: Type 2 lepra reaction
     Dosage: 1 MILLIGRAM/KILOGRAM PER DAY
     Route: 065
  2. PREDNISOLONE [Suspect]
     Active Substance: PREDNISOLONE
     Dosage: 0.05 MILLIGRAM/KILOGRAM PER DAY
     Route: 065
  3. THALIDOMIDE [Suspect]
     Active Substance: THALIDOMIDE
     Indication: Type 2 lepra reaction
     Dosage: 200 MILLIGRAM PER DAY
     Route: 065
  4. THALIDOMIDE [Suspect]
     Active Substance: THALIDOMIDE
     Dosage: 100 MILLIGRAM PER DAY
     Route: 065
  5. ADALIMUMAB [Suspect]
     Active Substance: ADALIMUMAB
     Indication: Type 2 lepra reaction
     Dosage: 40 MILLIGRAM PER 0.05 WEEKLY (SC ADALIMUMAB 40 MG/BIWEEKLY)
     Route: 058

REACTIONS (4)
  - Obesity [Unknown]
  - Diabetes mellitus [Unknown]
  - Sepsis [Unknown]
  - Therapy non-responder [Unknown]
